FAERS Safety Report 6420699-8 (Version None)
Quarter: 2009Q4

REPORT INFORMATION
  Report Type: 
  Country: None (occurrence: None)
  Receive Date: 20091027
  Receipt Date: 20050208
  Transmission Date: 20100525
  Serious: Yes (Hospitalization)
  Sender: FDA-Public Use
  Company Number: 2009009002

PATIENT
  Age: 46 Year
  Sex: Female
  Weight: 60.782 kg

DRUGS (14)
  1. ACTIQ [Suspect]
     Indication: ABDOMINAL PAIN
     Dosage: 2400 MCG (800 MCG,3 IN 1 D),BU
     Route: 002
     Dates: start: 20041201
  2. DURAGESIC /00174601/(FENTANYL) [Concomitant]
  3. BUDESONIDE [Concomitant]
  4. PENTASA [Concomitant]
  5. PROTONIX [Concomitant]
  6. CHOLESTYRAMINE (COLESTYRAMINE) [Concomitant]
  7. KLONOPIN [Concomitant]
  8. VOLTAREN /00372301/ (DICLOFENAC) [Concomitant]
  9. PHENERGAN /00033001/ (PROMETHAZINE) [Concomitant]
  10. QUININE SULFATE (QUININE SULFATE) [Concomitant]
  11. ZANAFLEX [Concomitant]
  12. BENTYL [Concomitant]
  13. EFFEXOR /01233801/ (VENLAFAXINE) [Concomitant]
  14. DOXEPIN HCL [Concomitant]

REACTIONS (5)
  - ANAEMIA [None]
  - BLOOD URINE PRESENT [None]
  - CONFUSIONAL STATE [None]
  - HAEMATOCHEZIA [None]
  - OVARIAN CYST [None]
